FAERS Safety Report 5792138-1 (Version None)
Quarter: 2008Q2

REPORT INFORMATION
  Report Type: 
  Country: None (occurrence: None)
  Receive Date: 20080626
  Receipt Date: 20080609
  Transmission Date: 20081010
  Serious: Yes (Other)
  Sender: FDA-Public Use
  Company Number: US-ELI_LILLY_AND_COMPANY-US200806002157

PATIENT
  Sex: Female
  Weight: 102.95 kg

DRUGS (2)
  1. BYETTA [Suspect]
     Indication: TYPE 2 DIABETES MELLITUS
     Dosage: 5 UG, 2/D
     Route: 058
     Dates: start: 20080418, end: 20080401
  2. BYETTA [Suspect]
     Dosage: 5 UG, 2/D
     Route: 058
     Dates: start: 20080606

REACTIONS (8)
  - BLOOD GLUCOSE INCREASED [None]
  - GLAUCOMA [None]
  - MACULAR DEGENERATION [None]
  - NAUSEA [None]
  - PYREXIA [None]
  - RETINAL HAEMORRHAGE [None]
  - VISUAL ACUITY REDUCED [None]
  - WEIGHT DECREASED [None]
